FAERS Safety Report 9391510 (Version 2)
Quarter: 2013Q4

REPORT INFORMATION
  Report Type: Report from Study
  Country: None (occurrence: US)
  Receive Date: 20130709
  Receipt Date: 20131105
  Transmission Date: 20140711
  Serious: Yes (Hospitalization)
  Sender: FDA-Public Use
  Company Number: US-TEVA-416723USA

PATIENT
  Age: 35 Year
  Sex: Male

DRUGS (3)
  1. COPAXONE [Suspect]
     Indication: MULTIPLE SCLEROSIS
     Dates: start: 20060626, end: 20110201
  2. METOPROLOL [Concomitant]
     Indication: HYPERTENSION
  3. ATORVASTATIN [Concomitant]
     Indication: HYPERLIPIDAEMIA

REACTIONS (9)
  - Injection site infection [Recovered/Resolved]
  - Medical induction of coma [Unknown]
  - Pyomyositis [Recovered/Resolved]
  - Sepsis [Recovered/Resolved]
  - Toxic shock syndrome streptococcal [Recovered/Resolved]
  - Multi-organ failure [Recovered/Resolved]
  - Urinary tract infection [Recovered/Resolved]
  - Bacteraemia [Recovered/Resolved]
  - Prostatic abscess [Recovered/Resolved]
